FAERS Safety Report 7925261-3 (Version None)
Quarter: 2011Q4

REPORT INFORMATION
  Report Type: 
  Country: None (occurrence: None)
  Receive Date: 20111118
  Receipt Date: 20110404
  Transmission Date: 20120403
  Serious: No
  Sender: FDA-Public Use
  Company Number: US-AMGEN-USASP2011017789

PATIENT
  Sex: Male

DRUGS (1)
  1. ENBREL [Suspect]
     Indication: RHEUMATOID ARTHRITIS
     Dosage: 50 MG, QWK
     Dates: start: 20090701

REACTIONS (6)
  - RHEUMATOID ARTHRITIS [None]
  - DYSPNOEA [None]
  - HEART RATE IRREGULAR [None]
  - WHEEZING [None]
  - HEART RATE INCREASED [None]
  - STAPHYLOCOCCAL INFECTION [None]
